FAERS Safety Report 5917730-2 (Version None)
Quarter: 2008Q4

REPORT INFORMATION
  Report Type: 
  Country: None (occurrence: None)
  Receive Date: 20081014
  Receipt Date: 20081007
  Transmission Date: 20090506
  Serious: Yes (Other)
  Sender: FDA-Public Use
  Company Number: US-BAYER-200812677BCC

PATIENT
  Age: 79 Year
  Sex: Female

DRUGS (2)
  1. ASPIRIN [Suspect]
     Indication: DRUG USE FOR UNKNOWN INDICATION
     Route: 048
  2. PLAVIX [Suspect]
     Indication: IMPLANTABLE DEFIBRILLATOR INSERTION
     Route: 048
     Dates: end: 20040101

REACTIONS (2)
  - CONTUSION [None]
  - LOWER GASTROINTESTINAL HAEMORRHAGE [None]
